FAERS Safety Report 6133138-1 (Version None)
Quarter: 2009Q1

REPORT INFORMATION
  Report Type: 
  Country: None (occurrence: None)
  Receive Date: 20090326
  Receipt Date: 20090317
  Transmission Date: 20090719
  Serious: Yes (Other)
  Sender: FDA-Public Use
  Company Number: US-PFIZER INC-2006098354

PATIENT
  Sex: Female

DRUGS (5)
  1. MEDROXYPROGESTERONE AND MEDROXYPROGESTERONE ACETATE [Suspect]
     Indication: HORMONE REPLACEMENT THERAPY
     Dosage: UNK
     Route: 048
     Dates: start: 19970101, end: 20020201
  2. MEDROXYPROGESTERONE AND MEDROXYPROGESTERONE ACETATE [Suspect]
     Indication: MENOPAUSE
  3. PMS-CONJUGATED ESTROGENS [Suspect]
     Indication: MENOPAUSE
     Dosage: UNK
     Route: 065
     Dates: start: 19970101, end: 19990101
  4. PREMARIN [Suspect]
     Indication: HORMONE REPLACEMENT THERAPY
     Dosage: UNK
     Route: 065
     Dates: start: 19990101, end: 20020201
  5. PREMARIN [Suspect]
     Indication: MENOPAUSE

REACTIONS (1)
  - BREAST CANCER [None]
